FAERS Safety Report 18561382 (Version 1)
Quarter: 2020Q4

REPORT INFORMATION
  Report Type: Spontaneous
  Country: FR (occurrence: FR)
  Receive Date: 20201130
  Receipt Date: 20201130
  Transmission Date: 20210114
  Serious: Yes (Other)
  Sender: FDA-Public Use
  Company Number: US-BRAINTREE LABORATORIES-200460-1

PATIENT
  Age: 38 Year
  Sex: Female
  Weight: 63 kg

DRUGS (1)
  1. EZICLEN [Suspect]
     Active Substance: MAGNESIUM SULFATE\POTASSIUM SULFATE\SODIUM SULFATE
     Indication: COLONOSCOPY
     Route: 048
     Dates: start: 20201104, end: 20201104

REACTIONS (16)
  - Dizziness [None]
  - Headache [None]
  - Peripheral coldness [None]
  - Swelling face [None]
  - Malaise [None]
  - Micturition urgency [None]
  - Hot flush [None]
  - Feeling hot [None]
  - Erythema [None]
  - Head discomfort [None]
  - Chills [None]
  - Arrhythmia [None]
  - Pollakiuria [None]
  - Somnolence [None]
  - Lip discolouration [None]
  - Feeling cold [None]

NARRATIVE: CASE EVENT DATE: 20201104
